FAERS Safety Report 22065628 (Version 1)
Quarter: 2023Q1

REPORT INFORMATION
  Report Type: Spontaneous
  Country: TW (occurrence: TW)
  Receive Date: 20230306
  Receipt Date: 20230306
  Transmission Date: 20230418
  Serious: Yes (Hospitalization)
  Sender: FDA-Public Use
  Company Number: TW-JNJFOC-20230261998

PATIENT
  Age: 87 Year
  Sex: Male
  Weight: 51.4 kg

DRUGS (1)
  1. STELARA [Suspect]
     Active Substance: USTEKINUMAB
     Indication: Product used for unknown indication
     Route: 058

REACTIONS (2)
  - Rib fracture [Recovered/Resolved]
  - Stomal hernia [Recovered/Resolved]

NARRATIVE: CASE EVENT DATE: 20230205
